FAERS Safety Report 9116521 (Version 1)
Quarter: 2013Q1

REPORT INFORMATION
  Report Type: Spontaneous
  Country: FR (occurrence: FR)
  Receive Date: 20130225
  Receipt Date: 20130225
  Transmission Date: 20140127
  Serious: Yes (Hospitalization)
  Sender: FDA-Public Use
  Company Number: FR-US-EMD SERONO, INC.-7194647

PATIENT
  Age: 37 Year
  Sex: Female

DRUGS (3)
  1. OVITRELLE [Suspect]
     Indication: IN VITRO FERTILISATION
     Route: 058
     Dates: start: 201002
  2. PUREGON [Suspect]
     Indication: IN VITRO FERTILISATION
     Route: 058
     Dates: start: 2007
  3. PUREGON [Suspect]
     Route: 058
     Dates: start: 201002

REACTIONS (1)
  - Breast cancer [Unknown]
